FAERS Safety Report 4835477-0 (Version None)
Quarter: 2005Q4

REPORT INFORMATION
  Report Type: 
  Country: None (occurrence: None)
  Receive Date: 20051121
  Receipt Date: 20051108
  Transmission Date: 20060501
  Serious: Yes (Hospitalization, Other)
  Sender: FDA-Public Use
  Company Number: 2005142743

PATIENT
  Age: 50 Year
  Sex: Male
  Weight: 81.6475 kg

DRUGS (14)
  1. LYRICA [Suspect]
     Indication: NEURALGIA
     Dosage: 300 MG (150 MG, 2 IN 1 D), ORAL
     Route: 048
     Dates: start: 20051001, end: 20051002
  2. VICODIN [Suspect]
     Indication: ILL-DEFINED DISORDER
  3. GABAPENTIN [Suspect]
     Indication: ILL-DEFINED DISORDER
  4. ALL OTHER THERAPEUTIC PRODUCTS (ALL OTHER THERAPEUTIC PRODUCTS) [Suspect]
     Indication: ILL-DEFINED DISORDER
  5. DURAGESIC-100 [Suspect]
     Indication: ILL-DEFINED DISORDER
  6. OXYCONTIN [Suspect]
     Indication: HEADACHE
  7. PAXIL [Concomitant]
  8. VERAPAMIL [Concomitant]
  9. AMBIEN [Concomitant]
  10. BACTROBAN CREAM (MUPIROCIN) [Concomitant]
  11. FOSAMAX [Concomitant]
  12. TRAZODONE HCL [Concomitant]
  13. LAMICTAL [Concomitant]
  14. ALL OTHER THERAPEUTIC PRODUCTS (ALL OTHER THERAPEUTIC PRODUCTS) [Concomitant]

REACTIONS (18)
  - ARTHRALGIA [None]
  - ASTHENIA [None]
  - BACK PAIN [None]
  - CLONUS [None]
  - CONVULSION [None]
  - DRUG DEPENDENCE [None]
  - DRUG INEFFECTIVE [None]
  - FACIAL PAIN [None]
  - FACIAL PALSY [None]
  - HEADACHE [None]
  - HEART RATE INCREASED [None]
  - INTENTIONAL OVERDOSE [None]
  - MUSCLE ATROPHY [None]
  - NASOPHARYNGEAL CANCER [None]
  - PAIN IN EXTREMITY [None]
  - SEDATION [None]
  - SHOULDER PAIN [None]
  - SLUGGISHNESS [None]
